FAERS Safety Report 9506254 (Version 1)
Quarter: 2013Q1

REPORT INFORMATION
  Report Type: Spontaneous
  Country: US (occurrence: None)
  Receive Date: 20130305
  Receipt Date: 20130305
  Transmission Date: 20140127
  Serious: Yes (Other)
  Sender: FDA-Public Use
  Company Number: 163-21880-11033663

PATIENT
  Age: 63 Year
  Sex: Female

DRUGS (6)
  1. REVLIMID [Suspect]
     Indication: MYELODYSPLASTIC SYNDROME
     Dosage: 10 MG, 5 IN 1 WK, PO
     Route: 048
     Dates: start: 20100410
  2. LEVOTHYROXINE ( LEVOTHYROXINE) [Concomitant]
  3. VITAMIN D ( ERGOCALCIFEROL) ( CAPSULES) [Concomitant]
  4. ASPIRIN ( ACETYLSALICYLIC ACID) (TABLETS) [Concomitant]
  5. IBUPROFEN ( IBUPROFEN) (TABLETS) [Concomitant]
  6. VITAMIN B12 ( CYANOCOBALAMIN) ( TABLETS) [Concomitant]

REACTIONS (2)
  - Diarrhoea [None]
  - Dizziness [None]
